FAERS Safety Report 6607735-0 (Version None)
Quarter: 2010Q1

REPORT INFORMATION
  Report Type: 
  Country: None (occurrence: None)
  Receive Date: 20100301
  Receipt Date: 20100215
  Transmission Date: 20100710
  Serious: Yes (Death)
  Sender: FDA-Public Use
  Company Number: US-JNJFOC-20100209659

PATIENT
  Sex: Female

DRUGS (5)
  1. FENTANYL [Suspect]
     Indication: DRUG USE FOR UNKNOWN INDICATION
     Route: 062
  2. BENZOYLECGONINE [Suspect]
     Indication: DRUG USE FOR UNKNOWN INDICATION
     Route: 065
  3. MEPROBAMATE [Concomitant]
  4. CARISOPRODOL [Concomitant]
  5. ALPRAZOLAM [Concomitant]

REACTIONS (1)
  - DRUG TOXICITY [None]
